FAERS Safety Report 7754168-X (Version None)
Quarter: 2011Q3

REPORT INFORMATION
  Report Type: 
  Country: None (occurrence: None)
  Receive Date: 20110913
  Receipt Date: 20110830
  Transmission Date: 20111222
  Serious: Yes (Hospitalization)
  Sender: FDA-Public Use
  Company Number: 2011MA012730

PATIENT
  Age: 2 Year
  Sex: Female

DRUGS (4)
  1. PYRAZINAMIDE [Suspect]
     Indication: PULMONARY TUBERCULOSIS
     Dosage: 22.7 MG/KG;QD
  2. STREPTOMYCIN [Suspect]
     Indication: PULMONARY TUBERCULOSIS
  3. RIFAMPIN [Suspect]
     Indication: PULMONARY TUBERCULOSIS
     Dosage: 14 MG/KG;QD
  4. ISONIAZID [Suspect]
     Indication: PULMONARY TUBERCULOSIS
     Dosage: 10.2 MG/KG:QD

REACTIONS (10)
  - PYREXIA [None]
  - CONDITION AGGRAVATED [None]
  - PARADOXICAL DRUG REACTION [None]
  - LUNG CONSOLIDATION [None]
  - LYMPHADENOPATHY [None]
  - PULMONARY TUBERCULOSIS [None]
  - HILAR LYMPHADENOPATHY [None]
  - COUGH [None]
  - LUNG NEOPLASM [None]
  - LYMPH NODE TUBERCULOSIS [None]
